FAERS Safety Report 6503642-2 (Version None)
Quarter: 2009Q4

REPORT INFORMATION
  Report Type: 
  Country: None (occurrence: None)
  Receive Date: 20091217
  Receipt Date: 20091214
  Transmission Date: 20100525
  Serious: Yes (Other)
  Sender: FDA-Public Use
  Company Number: ES-BAYER-200942722GPV

PATIENT
  Age: 52 Year
  Sex: Female
  Weight: 58 kg

DRUGS (6)
  1. ADIRO [Suspect]
     Indication: PROPHYLAXIS
     Dosage: TOTAL DAILY DOSE: 100 MG
     Route: 048
     Dates: start: 20091104, end: 20091105
  2. MABTHERA [Suspect]
     Indication: THROMBOCYTOPENIA
     Route: 042
     Dates: start: 20091104, end: 20091105
  3. ACTOCORTINA [Suspect]
     Indication: PREMEDICATION
     Route: 042
     Dates: start: 20091104, end: 20091105
  4. PERFALGAN [Suspect]
     Indication: PREMEDICATION
     Dosage: TOTAL DAILY DOSE: 1 G
     Route: 042
     Dates: start: 20091104, end: 20091105
  5. PANTOPRAZOLE [Suspect]
     Indication: PROPHYLAXIS
     Dosage: TOTAL DAILY DOSE: 40 MG
     Route: 048
     Dates: start: 20091104, end: 20091105
  6. POLARAMINE [Suspect]
     Indication: PREMEDICATION
     Route: 065
     Dates: start: 20091104, end: 20091105

REACTIONS (1)
  - PAROTITIS [None]
